FAERS Safety Report 17468206 (Version 1)
Quarter: 2020Q1

REPORT INFORMATION
  Report Type: Spontaneous
  Country: US (occurrence: US)
  Receive Date: 20200214
  Receipt Date: 20200214
  Transmission Date: 20200409
  Serious: Yes (Other)
  Sender: FDA-Public Use
  Company Number: None

PATIENT
  Age: 55 Year
  Sex: Male

DRUGS (24)
  1. ASPIRIN. [Concomitant]
     Active Substance: ASPIRIN
  2. KETOROLAC [Concomitant]
     Active Substance: KETOROLAC TROMETHAMINE
  3. SUPER B COMPLEX [Concomitant]
     Active Substance: CYANOCOBALAMIN\DEXPANTHENOL\NIACINAMIDE\PYRIDOXINE HYDROCHLORIDE\RIBOFLAVIN 5^-PHOSPHATE SODIUM\THIAMINE HYDROCHLORIDE\VITAMIN B COMPLEX
  4. BIKTARVY [Suspect]
     Active Substance: BICTEGRAVIR SODIUM\EMTRICITABINE\TENOFOVIR ALAFENAMIDE FUMARATE
     Indication: HIV INFECTION
     Dosage: ?          QUANTITY:30 DF DOSAGE FORM;OTHER FREQUENCY:1 TABLET DAILY;?
     Route: 048
     Dates: start: 20200208
  5. ALLOPURINOL. [Concomitant]
     Active Substance: ALLOPURINOL
  6. POTASSIUM CITRATE. [Concomitant]
     Active Substance: POTASSIUM CITRATE
  7. VITAMIN D3 [Concomitant]
     Active Substance: CHOLECALCIFEROL
  8. PROBIOTIC [Concomitant]
     Active Substance: PROBIOTICS NOS
  9. MELATOIN [Concomitant]
  10. FAMOTIDINE. [Concomitant]
     Active Substance: FAMOTIDINE
  11. FENOFIBRATE. [Concomitant]
     Active Substance: FENOFIBRATE
  12. MINERALS [Concomitant]
     Active Substance: MINERALS
  13. SUPPLEMENTS [Concomitant]
     Active Substance: UNSPECIFIED INGREDIENT
  14. GABAPENTIN. [Concomitant]
     Active Substance: GABAPENTIN
  15. FISH OIL [Suspect]
     Active Substance: FISH OIL
  16. LISINOPRIL. [Concomitant]
     Active Substance: LISINOPRIL
  17. ZOLPIDEM [Concomitant]
     Active Substance: ZOLPIDEM TARTRATE
  18. OVER THE COUNTER MEDICATION [Concomitant]
     Active Substance: UNSPECIFIED INGREDIENT
  19. IMITREX [Concomitant]
     Active Substance: SUMATRIPTAN SUCCINATE
  20. NO DRUG NAME [Concomitant]
  21. HERBAL NOS [Concomitant]
     Active Substance: HERBALS
  22. HYDROCHLOROTHAIZIDE [Concomitant]
  23. VITAMINS [Concomitant]
     Active Substance: VITAMINS
  24. PREVAGEN [Concomitant]
     Active Substance: DIETARY SUPPLEMENT

REACTIONS (1)
  - Headache [None]

NARRATIVE: CASE EVENT DATE: 20200209
